FAERS Safety Report 11012281 (Version 1)
Quarter: 2015Q2

REPORT INFORMATION
  Report Type: Spontaneous
  Country: US (occurrence: US)
  Receive Date: 20150411
  Receipt Date: 20150411
  Transmission Date: 20150821
  Serious: No
  Sender: FDA-Public Use
  Company Number: US-ASTRAZENECA-2015SE30463

PATIENT
  Age: 11982 Day
  Sex: Female
  Weight: 81.6 kg

DRUGS (3)
  1. SINGULAIR [Concomitant]
     Active Substance: MONTELUKAST SODIUM
     Indication: ASTHMA
     Dosage: DAILY
     Route: 065
  2. SYMBICORT [Suspect]
     Active Substance: BUDESONIDE\FORMOTEROL FUMARATE DIHYDRATE
     Indication: ASTHMA
     Dosage: 80/4.5 TWO PUFFS ,TWO TIMES A DAY
     Route: 055
     Dates: start: 2010
  3. VENTOLIN RESCUE INHALER [Concomitant]
     Indication: ASTHMA
     Dosage: AS REQUIRED
     Route: 055

REACTIONS (7)
  - Wheezing [Unknown]
  - Dyspnoea [Unknown]
  - Cerumen impaction [Unknown]
  - Middle ear effusion [Unknown]
  - Oropharyngeal pain [Recovered/Resolved]
  - Ear discomfort [Recovered/Resolved]
  - Ear pain [Recovered/Resolved]

NARRATIVE: CASE EVENT DATE: 20150323
